FAERS Safety Report 4926088-7 (Version None)
Quarter: 2006Q1

REPORT INFORMATION
  Report Type: 
  Country: None (occurrence: None)
  Receive Date: 20060228
  Receipt Date: 20050815
  Transmission Date: 20060701
  Serious: No
  Sender: FDA-Public Use
  Company Number: S2005US12282

PATIENT
  Sex: Female

DRUGS (2)
  1. LAMICTAL [Suspect]
     Indication: EPILEPSY
     Dosage: 150MG TWICE PER DAY
     Route: 048
  2. NICOTINE [Suspect]
     Indication: SMOKER
     Route: 055

REACTIONS (3)
  - BALANCE DISORDER [None]
  - DIZZINESS [None]
  - GAIT DISTURBANCE [None]
